FAERS Safety Report 13031524 (Version 1)
Quarter: 2016Q4

REPORT INFORMATION
  Report Type: Spontaneous
  Country: US (occurrence: US)
  Receive Date: 20161215
  Receipt Date: 20161215
  Transmission Date: 20170207
  Serious: No
  Sender: FDA-Public Use
  Company Number: US-BAUSCH-BL-2016-006687

PATIENT
  Age: 19 Year
  Sex: Female
  Weight: 61.29 kg

DRUGS (1)
  1. SYPRINE [Suspect]
     Active Substance: TRIENTINE HYDROCHLORIDE
     Indication: HEPATO-LENTICULAR DEGENERATION
     Dosage: 250MG IN THE MORNING AND 500MG IN THE EVENING
     Route: 048
     Dates: start: 201310

REACTIONS (3)
  - Incorrect product storage [Unknown]
  - Drug administration error [Not Recovered/Not Resolved]
  - No adverse event [Unknown]

NARRATIVE: CASE EVENT DATE: 20160316
